FAERS Safety Report 17864157 (Version 1)
Quarter: 2020Q2

REPORT INFORMATION
  Report Type: Spontaneous
  Country: JP (occurrence: JP)
  Receive Date: 20200605
  Receipt Date: 20200605
  Transmission Date: 20200714
  Serious: Yes (Hospitalization, Other)
  Sender: FDA-Public Use
  Company Number: JP-LUPIN PHARMACEUTICALS INC.-2011-00047

PATIENT
  Age: 66 Year
  Sex: Female

DRUGS (5)
  1. URSODEOXYCHOLIC ACID [Suspect]
     Active Substance: URSODIOL
     Indication: PRIMARY BILIARY CHOLANGITIS
     Dosage: 600 UNK,UNK,
     Route: 065
  2. FENOFIBRATE. [Suspect]
     Active Substance: FENOFIBRATE
     Indication: CONTRAINDICATION TO MEDICAL TREATMENT
  3. FENOFIBRATE. [Suspect]
     Active Substance: FENOFIBRATE
     Indication: PRODUCT USE IN UNAPPROVED INDICATION
  4. FENOFIBRATE. [Suspect]
     Active Substance: FENOFIBRATE
     Indication: PRIMARY BILIARY CHOLANGITIS
     Dosage: 150 UNK,QD,
     Route: 048
  5. URSODEOXYCHOLIC ACID [Suspect]
     Active Substance: URSODIOL
     Indication: HEPATIC FUNCTION ABNORMAL

REACTIONS (12)
  - Aspartate aminotransferase increased [Recovering/Resolving]
  - Decreased appetite [Unknown]
  - Blood bilirubin increased [Recovering/Resolving]
  - Gamma-glutamyltransferase increased [Recovering/Resolving]
  - Abdominal pain upper [Unknown]
  - Drug-induced liver injury [Recovering/Resolving]
  - Blood alkaline phosphatase increased [Recovering/Resolving]
  - C-reactive protein increased [Recovering/Resolving]
  - Contraindication to medical treatment [Recovering/Resolving]
  - Pyrexia [Unknown]
  - Alanine aminotransferase increased [Recovering/Resolving]
  - Eosinophil count increased [Recovering/Resolving]
